FAERS Safety Report 6223080-X (Version None)
Quarter: 2009Q2

REPORT INFORMATION
  Report Type: 
  Country: None (occurrence: None)
  Receive Date: 20090611
  Receipt Date: 20090606
  Transmission Date: 20091009
  Serious: No
  Sender: FDA-Public Use
  Company Number: US-B.I. PHARMACEUTICALS,INC./RIDGEFIELD-2009-BP-06981BP

PATIENT
  Sex: Female

DRUGS (5)
  1. ZANTAC 150 [Suspect]
     Indication: DYSPEPSIA
     Dosage: 300MG
     Route: 048
     Dates: start: 20050101
  2. AMLODIPINE [Concomitant]
     Indication: HYPERTENSION
     Dosage: 5MG
  3. DILTIAZEM [Concomitant]
     Indication: HYPERTENSION
     Dosage: 120MG
  4. CRANBERRY PILLS [Concomitant]
     Indication: PROPHYLAXIS URINARY TRACT INFECTION
  5. ARTHRITIS MEDICINE [Concomitant]
     Indication: ARTHRITIS

REACTIONS (2)
  - DIARRHOEA [None]
  - FAECES DISCOLOURED [None]
